FAERS Safety Report 4373234-2 (Version None)
Quarter: 2004Q2

REPORT INFORMATION
  Report Type: 
  Country: None (occurrence: None)
  Receive Date: 20040608
  Receipt Date: 20040602
  Transmission Date: 20050107
  Serious: Yes (Hospitalization)
  Sender: FDA-Public Use
  Company Number: DEPFP-S-20040018

PATIENT
  Sex: Female

DRUGS (2)
  1. NAVELBINE [Suspect]
     Indication: BREAST CANCER
     Dosage: 40MG WEEKLY
     Route: 042
     Dates: start: 20001201
  2. MITOMYCIN [Concomitant]

REACTIONS (4)
  - AGITATION [None]
  - DYSPNOEA [None]
  - LUNG DISORDER [None]
  - PANIC REACTION [None]
